FAERS Safety Report 5734988-3 (Version None)
Quarter: 2008Q2

REPORT INFORMATION
  Report Type: 
  Country: None (occurrence: None)
  Receive Date: 20080508
  Receipt Date: 20080508
  Transmission Date: 20081010
  Serious: Yes (Death)
  Sender: FDA-Public Use
  Company Number: None

PATIENT
  Age: 60 Year
  Sex: Female
  Weight: 70.7611 kg

DRUGS (1)
  1. DIGITEK  BERTEK  ACTAVIS [Suspect]
     Dates: start: 20050303, end: 20061030

REACTIONS (1)
  - DISEASE COMPLICATION [None]
